FAERS Safety Report 15324002 (Version 1)
Quarter: 2018Q3

REPORT INFORMATION
  Report Type: Report from Study
  Country: BR (occurrence: BR)
  Receive Date: 20180828
  Receipt Date: 20180828
  Transmission Date: 20181010
  Serious: Yes (Life-Threatening, Hospitalization, Other)
  Sender: FDA-Public Use
  Company Number: BR-UCBSA-2018037154

PATIENT
  Sex: Female
  Weight: 21 kg

DRUGS (5)
  1. LEVETIRACETAM. [Suspect]
     Active Substance: LEVETIRACETAM
     Dosage: 3 ML, 2X/DAY (BID)
     Dates: start: 201712, end: 2018
  2. DEPAKENE [Concomitant]
     Active Substance: VALPROIC ACID
     Indication: EPILEPSY
     Dosage: UNK
  3. LEVETIRACETAM. [Suspect]
     Active Substance: LEVETIRACETAM
     Indication: EPILEPSY
     Dosage: 1 ML, 2X/DAY (BID)
     Route: 048
     Dates: start: 2014, end: 2014
  4. LEVETIRACETAM. [Suspect]
     Active Substance: LEVETIRACETAM
     Dosage: UNK
  5. LEVETIRACETAM. [Suspect]
     Active Substance: LEVETIRACETAM
     Dosage: 8 ML, 3X/DAY (TID)
     Dates: start: 2018

REACTIONS (5)
  - Off label use [Unknown]
  - Gastrointestinal necrosis [Recovered/Resolved]
  - Nosocomial infection [Recovered/Resolved]
  - Drug ineffective [Unknown]
  - Thrombocytopenia [Not Recovered/Not Resolved]

NARRATIVE: CASE EVENT DATE: 2014
